FAERS Safety Report 25740277 (Version 1)
Quarter: 2025Q3

REPORT INFORMATION
  Report Type: Report from Study
  Country: US (occurrence: US)
  Receive Date: 20250829
  Receipt Date: 20250829
  Transmission Date: 20251021
  Serious: Yes (Other)
  Sender: ABBVIE
  Company Number: US-ABBVIE-6428871

PATIENT
  Age: 9 Year
  Sex: Male
  Weight: 29.9 kg

DRUGS (6)
  1. VENETOCLAX [Suspect]
     Active Substance: VENETOCLAX
     Indication: Acute lymphocytic leukaemia
     Route: 048
     Dates: start: 20250623
  2. VENETOCLAX [Suspect]
     Active Substance: VENETOCLAX
     Indication: Acute lymphocytic leukaemia
     Route: 048
     Dates: start: 20250710, end: 20250710
  3. VENETOCLAX [Suspect]
     Active Substance: VENETOCLAX
     Indication: Acute lymphocytic leukaemia
     Route: 048
     Dates: start: 20250710, end: 20250710
  4. VENETOCLAX [Suspect]
     Active Substance: VENETOCLAX
     Indication: Acute lymphocytic leukaemia
     Dosage: TOTAL DAILY DOSE: 300 MG
     Route: 048
     Dates: start: 20250711, end: 20250715
  5. Daratumomab [Concomitant]
     Indication: T-cell type acute leukaemia
     Route: 042
     Dates: start: 20250625, end: 20250716
  6. AZACITIDINE [Concomitant]
     Active Substance: AZACITIDINE
     Indication: T-cell type acute leukaemia
     Route: 042
     Dates: start: 20250625, end: 20250701

REACTIONS (4)
  - Febrile neutropenia [Recovered/Resolved]
  - Diarrhoea [Recovered/Resolved]
  - Anaemia [Recovered/Resolved]
  - Pyrexia [Recovered/Resolved]

NARRATIVE: CASE EVENT DATE: 20250710
